FAERS Safety Report 6508081-6 (Version None)
Quarter: 2009Q4

REPORT INFORMATION
  Report Type: 
  Country: None (occurrence: None)
  Receive Date: 20091221
  Receipt Date: 20091211
  Transmission Date: 20100525
  Serious: Yes (Other)
  Sender: FDA-Public Use
  Company Number: GB-BAYER-200942743GPV

PATIENT

DRUGS (5)
  1. DACARBAZINE [Suspect]
     Indication: HODGKIN'S DISEASE
     Dosage: ON DAYS 1 AND 15, A FEW CYCLES
  2. DOXORUBICIN HCL [Suspect]
     Indication: HODGKIN'S DISEASE
     Dosage: A FEW CYCLES
  3. BLEOMYCIN SULFATE [Suspect]
     Indication: HODGKIN'S DISEASE
     Dosage: 10,000 UNITS/M^2, A FEW CYCLES
  4. VINBLASTINE [Suspect]
     Indication: HODGKIN'S DISEASE
     Dosage: A FEW CYCLES
  5. NEUPOGEN [Concomitant]
     Indication: HODGKIN'S DISEASE

REACTIONS (1)
  - DIFFUSE LARGE B-CELL LYMPHOMA [None]
